FAERS Safety Report 9046540 (Version 1)
Quarter: 2013Q1

REPORT INFORMATION
  Report Type: Spontaneous
  Country: US (occurrence: None)
  Receive Date: 20130128
  Receipt Date: 20130128
  Transmission Date: 20140127
  Serious: Yes (Life-Threatening, Hospitalization, Disabling)
  Sender: FDA-Public Use
  Company Number: None

PATIENT
  Age: 63 Year
  Sex: Male
  Weight: 64.41 kg

DRUGS (1)
  1. ENBREL [Suspect]
     Indication: ANKYLOSING SPONDYLITIS
     Route: 030
     Dates: start: 20020517, end: 20090517

REACTIONS (7)
  - Pancreatitis haemorrhagic [None]
  - Hepatic failure [None]
  - Renal failure [None]
  - Cardiac failure [None]
  - Gastrointestinal disorder [None]
  - Pancreatic disorder [None]
  - Impaired work ability [None]
